FAERS Safety Report 8812418 (Version 2)
Quarter: 2012Q4

REPORT INFORMATION
  Report Type: 
  Country: US (occurrence: US)
  Receive Date: 20120927
  Receipt Date: 20121010
  Transmission Date: 20130627
  Serious: No
  Sender: FDA-Public Use
  Company Number: US-ASTRAZENECA-2003UW01180

PATIENT
  Age: 69 Year
  Sex: Male
  Weight: 90.7 kg

DRUGS (4)
  1. ENTOCORT [Suspect]
     Indication: COLITIS ULCERATIVE
     Route: 048
     Dates: start: 2003
  2. RHINOCORT AQUA [Suspect]
     Indication: SEASONAL ALLERGY
     Dosage: 2 SPRAY BID
     Route: 045
     Dates: start: 20100816
  3. RHINOCORT AQUA [Suspect]
     Indication: SEASONAL ALLERGY
     Dosage: 1 SPRAY BID
     Route: 045
     Dates: start: 20100816
  4. ASACOL [Concomitant]
     Indication: COLITIS ULCERATIVE

REACTIONS (6)
  - Head discomfort [Unknown]
  - Nasal discomfort [Recovered/Resolved]
  - Therapeutic response unexpected [Unknown]
  - Off label use [Unknown]
  - Circumstance or information capable of leading to medication error [Unknown]
  - Drug ineffective [Unknown]
